FAERS Safety Report 9220063 (Version 1)
Quarter: 2013Q1

REPORT INFORMATION
  Report Type: Spontaneous
  Country: US (occurrence: US)
  Receive Date: 20120830
  Receipt Date: 20120830
  Transmission Date: 20140127
  Serious: Yes (Other)
  Sender: FDA-Public Use
  Company Number: US008629

PATIENT
  Age: 54 Year
  Sex: Female

DRUGS (2)
  1. GABITRIL (TIAGABINE) [Suspect]
     Indication: PARTIAL SEIZURES
     Route: 048
     Dates: start: 1998
  2. PHENOBARBITAL [Concomitant]

REACTIONS (1)
  - Convulsion [None]
